FAERS Safety Report 7103715-X (Version None)
Quarter: 2010Q4

REPORT INFORMATION
  Report Type: 
  Country: None (occurrence: None)
  Receive Date: 20101115
  Receipt Date: 20101102
  Transmission Date: 20110411
  Serious: Yes (Other)
  Sender: FDA-Public Use
  Company Number: US-CELGENEUS-163-50794-10110644

PATIENT
  Sex: Male

DRUGS (15)
  1. VIDAZA [Suspect]
     Route: 065
  2. INSULIN [Concomitant]
     Dosage: 3-6 UNITS
     Route: 065
     Dates: start: 20100930
  3. DELTASONE [Concomitant]
     Route: 048
     Dates: start: 20100930
  4. ZYVOX [Concomitant]
     Route: 048
     Dates: start: 20100930
  5. SEREVENT [Concomitant]
     Dosage: 1 PUFF
     Route: 055
  6. ACCOLATE [Concomitant]
     Route: 048
  7. ACETAMINOPHEN [Concomitant]
     Route: 048
  8. CENTRUM SILVER [Concomitant]
     Route: 048
  9. PULMICORT [Concomitant]
     Route: 055
  10. PRAVASTATIN [Concomitant]
     Route: 065
  11. ATIVAN [Concomitant]
     Route: 048
  12. MEDROL [Concomitant]
     Route: 048
  13. EXJADE [Concomitant]
     Route: 048
  14. GUAIFENESIN [Concomitant]
     Route: 065
  15. MIRALAX [Concomitant]
     Route: 048

REACTIONS (1)
  - PULMONARY TOXICITY [None]
